FAERS Safety Report 19191784 (Version 2)
Quarter: 2021Q2

REPORT INFORMATION
  Report Type: Spontaneous
  Country: PT (occurrence: PT)
  Receive Date: 20210428
  Receipt Date: 20210505
  Transmission Date: 20210717
  Serious: Yes (Other)
  Sender: FDA-Public Use
  Company Number: PT-BAYER-2021-127890

PATIENT
  Age: 71 Year
  Sex: Male

DRUGS (1)
  1. JIVI [Suspect]
     Active Substance: DAMOCTOCOG ALFA PEGOL
     Indication: HAEMORRHAGE PROPHYLAXIS
     Dosage: UNK UNK, OW (60UI/KG)
     Dates: start: 202101

REACTIONS (1)
  - Erectile dysfunction [Recovered/Resolved]
